FAERS Safety Report 9306037 (Version 3)
Quarter: 2013Q2

REPORT INFORMATION
  Report Type: Spontaneous
  Country: JP (occurrence: None)
  Receive Date: 20130320
  Receipt Date: 20130501
  Transmission Date: 20140414
  Serious: Yes (Hospitalization)
  Sender: FDA-Public Use
  Company Number: VAL_02219_2013

PATIENT
  Age: 66 Year
  Sex: Female

DRUGS (4)
  1. LOPRESOR [Suspect]
     Indication: HYPERTENSION
     Route: 048
     Dates: start: 20120310, end: 20120310
  2. DIOVAN [Suspect]
     Indication: HYPERTENSION
     Route: 048
     Dates: start: 20120310, end: 20120310
  3. ROHYPNOL [Suspect]
     Indication: INSOMNIA
     Route: 048
     Dates: start: 20120310, end: 20120310
  4. CALBLOCK [Suspect]
     Indication: INSOMNIA
     Route: 048
     Dates: start: 20120310, end: 20120310

REACTIONS (9)
  - Overdose [None]
  - Shock [None]
  - Bradycardia [None]
  - Altered state of consciousness [None]
  - Emphysema [None]
  - Fall [None]
  - Body temperature decreased [None]
  - Suicide attempt [None]
  - Dementia [None]
